FAERS Safety Report 18839776 (Version 1)
Quarter: 2021Q1

REPORT INFORMATION
  Report Type: Report from Study
  Country: US (occurrence: US)
  Receive Date: 20210203
  Receipt Date: 20210203
  Transmission Date: 20210419
  Serious: Yes (Hospitalization)
  Sender: FDA-Public Use
  Company Number: US-EISAI MEDICAL RESEARCH-EC-2021-087335

PATIENT
  Age: 46 Year
  Sex: Female
  Weight: 112 kg

DRUGS (15)
  1. LENVIMA [Suspect]
     Active Substance: LENVATINIB
     Indication: ENDOMETRIAL CANCER
     Route: 048
     Dates: start: 20200806, end: 202010
  2. VITAMIN D3 [Concomitant]
     Active Substance: CHOLECALCIFEROL
  3. LORATADINE. [Concomitant]
     Active Substance: LORATADINE
  4. LEVOTHYROXINE. [Concomitant]
     Active Substance: LEVOTHYROXINE
  5. NITROFURANTOIN. [Concomitant]
     Active Substance: NITROFURANTOIN
  6. CYCLOBENZAPRINE. [Concomitant]
     Active Substance: CYCLOBENZAPRINE
  7. VITAMIN D2 [Concomitant]
     Active Substance: ERGOCALCIFEROL
  8. VITAMIN B?6 [Concomitant]
     Active Substance: PYRIDOXINE
  9. LENVIMA [Suspect]
     Active Substance: LENVATINIB
     Route: 048
     Dates: end: 202101
  10. POLYETHYLENE [Concomitant]
     Active Substance: HIGH DENSITY POLYETHYLENE
  11. POLYETHYLENE GLYCOL [Concomitant]
     Active Substance: POLYETHYLENE GLYCOLS
  12. CEFUROXIME. [Concomitant]
     Active Substance: CEFUROXIME
  13. METRONIDAZOLE. [Concomitant]
     Active Substance: METRONIDAZOLE
  14. OXYCODONE [Concomitant]
     Active Substance: OXYCODONE
  15. PROCHLORPERAZINE. [Concomitant]
     Active Substance: PROCHLORPERAZINE

REACTIONS (4)
  - Abdominal pain [Not Recovered/Not Resolved]
  - Decreased appetite [Recovering/Resolving]
  - Constipation [Recovering/Resolving]
  - Stomatitis [Not Recovered/Not Resolved]

NARRATIVE: CASE EVENT DATE: 20210124
